FAERS Safety Report 14447180 (Version 1)
Quarter: 2018Q1

REPORT INFORMATION
  Report Type: Spontaneous
  Country: ES (occurrence: ES)
  Receive Date: 20180126
  Receipt Date: 20180126
  Transmission Date: 20180509
  Serious: Yes (Hospitalization, Other)
  Sender: FDA-Public Use
  Company Number: ES-JAZZ-2018-ES-001211

PATIENT
  Age: 2 Year
  Sex: Male
  Weight: 13.5 kg

DRUGS (17)
  1. OMEPRAZOL                          /00661201/ [Concomitant]
     Active Substance: OMEPRAZOLE
     Dosage: 20 MG, QD
     Route: 048
     Dates: start: 20170712, end: 20170730
  2. SEPTRIN PAEDIATRIC [Concomitant]
     Indication: PROPHYLAXIS
     Dosage: 4 ML, BID
     Route: 048
     Dates: start: 201612
  3. ERWINASE [Suspect]
     Active Substance: ASPARAGINASE ERWINIA CHRYSANTHEMI
     Dosage: 67.2K IU, UNK
     Route: 030
     Dates: start: 20170418, end: 20170429
  4. FORTECORTIN                        /00016001/ [Suspect]
     Active Substance: DEXAMETHASONE
     Indication: ACUTE LYMPHOCYTIC LEUKAEMIA
     Dosage: 3 MG, BID
     Route: 048
     Dates: start: 20170418, end: 20170504
  5. ACICLOVIR [Concomitant]
     Active Substance: ACYCLOVIR
     Indication: PROPHYLAXIS
     Dosage: 136 MG, TID
     Route: 048
     Dates: start: 201612
  6. DEXAMETHASONE. [Concomitant]
     Active Substance: DEXAMETHASONE
     Indication: PROPHYLAXIS
     Dosage: 2 DROPS, TID
     Route: 047
     Dates: start: 20170323, end: 20170328
  7. DOXORUBICIN [Suspect]
     Active Substance: DOXORUBICIN
     Dosage: 34 MG, UNK
     Route: 042
     Dates: start: 20170712, end: 20170719
  8. CYTARABINE. [Suspect]
     Active Substance: CYTARABINE
     Indication: ACUTE LYMPHOCYTIC LEUKAEMIA
     Dosage: 4520 MG, UNK
     Route: 042
     Dates: start: 20170323, end: 20170325
  9. ETOPOSIDE. [Suspect]
     Active Substance: ETOPOSIDE
     Indication: ACUTE LYMPHOCYTIC LEUKAEMIA
     Dosage: 56 MG, QD
     Route: 042
     Dates: start: 20170325, end: 20170327
  10. OMEPRAZOL                          /00661201/ [Concomitant]
     Active Substance: OMEPRAZOLE
     Indication: PROPHYLAXIS
     Dosage: 10 MG, QD
     Route: 048
     Dates: start: 20170418, end: 20170509
  11. ERWINASE [Suspect]
     Active Substance: ASPARAGINASE ERWINIA CHRYSANTHEMI
     Indication: ACUTE LYMPHOCYTIC LEUKAEMIA
     Dosage: 33.6K IU, UNK
     Route: 030
     Dates: start: 20170328, end: 20170401
  12. VINCRISTINE SULFATE. [Suspect]
     Active Substance: VINCRISTINE SULFATE
     Dosage: 1.7 MG, UNK
     Route: 042
     Dates: start: 20170712, end: 20170719
  13. ONDANSETRON [Concomitant]
     Active Substance: ONDANSETRON
     Indication: PROPHYLAXIS
     Dosage: UNK, TID
     Route: 042
     Dates: start: 20170323, end: 20170328
  14. ERWINASE [Suspect]
     Active Substance: ASPARAGINASE ERWINIA CHRYSANTHEMI
     Dosage: 34.2 K (IU), UNK
     Route: 030
     Dates: start: 20170712, end: 20170716
  15. VINCRISTINE SULFATE. [Suspect]
     Active Substance: VINCRISTINE SULFATE
     Indication: ACUTE LYMPHOCYTIC LEUKAEMIA
     Dosage: 1.7 MG, UNK
     Route: 042
     Dates: start: 20170418, end: 20170425
  16. FORTECORTIN                        /00016001/ [Suspect]
     Active Substance: DEXAMETHASONE
     Dosage: 3 MG, BID
     Route: 048
     Dates: start: 20170712, end: 20170801
  17. DOXORUBICIN [Suspect]
     Active Substance: DOXORUBICIN
     Indication: ACUTE LYMPHOCYTIC LEUKAEMIA
     Dosage: 34 MG, UNK
     Route: 042
     Dates: start: 20170418, end: 20170425

REACTIONS (5)
  - Gastroenteritis adenovirus [Recovered/Resolved]
  - Febrile neutropenia [Recovered/Resolved]
  - Pharyngotonsillitis [Recovered/Resolved]
  - Thrombocytopenia [Recovered/Resolved]
  - Respiratory tract infection viral [Recovered/Resolved]

NARRATIVE: CASE EVENT DATE: 20170403
